FAERS Safety Report 26047945 (Version 1)
Quarter: 2025Q4

REPORT INFORMATION
  Report Type: Spontaneous
  Country: RU (occurrence: RU)
  Receive Date: 20251114
  Receipt Date: 20251114
  Transmission Date: 20260118
  Serious: Yes (Life-Threatening)
  Sender: FRESENIUS KABI
  Company Number: RU-FreseniusKabi-FK202515259

PATIENT
  Age: 8 Year
  Sex: Female
  Weight: 28.6 kg

DRUGS (11)
  1. PIPERACILLIN SODIUM\TAZOBACTAM SODIUM [Suspect]
     Active Substance: PIPERACILLIN SODIUM\TAZOBACTAM SODIUM
     Indication: Pneumonia bacterial
     Dosage: FORM OF ADMINISTRATION: POWDER FOR SOLUTION FOR INFUSION
     Route: 041
     Dates: start: 20250808, end: 20250817
  2. PIPERACILLIN SODIUM\TAZOBACTAM SODIUM [Suspect]
     Active Substance: PIPERACILLIN SODIUM\TAZOBACTAM SODIUM
     Route: 041
     Dates: start: 20250808, end: 20250817
  3. NEXIUM [Concomitant]
     Active Substance: ESOMEPRAZOLE MAGNESIUM
     Indication: Gastrointestinal ulcer
     Route: 041
     Dates: start: 20250808
  4. PREDNISOLONE [Concomitant]
     Active Substance: PREDNISOLONE
     Indication: Encephalitis autoimmune
     Route: 048
     Dates: start: 20250808
  5. FRAGMIN [Concomitant]
     Active Substance: DALTEPARIN SODIUM
     Indication: Product used for unknown indication
     Route: 058
     Dates: start: 20250808
  6. BACLOFEN [Concomitant]
     Active Substance: BACLOFEN
     Indication: Dystonia
     Route: 048
     Dates: start: 20250811
  7. KEPPRA [Concomitant]
     Active Substance: LEVETIRACETAM
     Indication: Dystonia
     Route: 048
     Dates: start: 20250808
  8. PROPRANOLOL HYDROCHLORIDE [Concomitant]
     Active Substance: PROPRANOLOL HYDROCHLORIDE
     Indication: Sinus tachycardia
     Route: 048
     Dates: start: 20250813
  9. Gabapentin Canon [Concomitant]
     Indication: Dystonia
     Route: 048
     Dates: start: 20250815
  10. Potassium orotate [Concomitant]
     Indication: Product used for unknown indication
     Route: 048
  11. POTASSIUM CHLORIDE [Concomitant]
     Active Substance: POTASSIUM CHLORIDE
     Indication: Product used for unknown indication
     Route: 041

REACTIONS (1)
  - Anaphylactic shock [Recovered/Resolved]

NARRATIVE: CASE EVENT DATE: 20250817
